FAERS Safety Report 14360921 (Version 1)
Quarter: 2018Q1

REPORT INFORMATION
  Report Type: Report from Study
  Country: US (occurrence: US)
  Receive Date: 20180107
  Receipt Date: 20180107
  Transmission Date: 20180509
  Serious: Yes (Hospitalization, Other)
  Sender: FDA-Public Use
  Company Number: US-SHIRE-US201736619

PATIENT
  Age: 31 Year
  Sex: Female

DRUGS (1)
  1. GATTEX [Suspect]
     Active Substance: TEDUGLUTIDE\WATER
     Indication: SHORT-BOWEL SYNDROME
     Dosage: 2.4 MG, 1X/DAY:QD
     Route: 065

REACTIONS (5)
  - Acute kidney injury [Unknown]
  - Intentional product misuse [Unknown]
  - Electrolyte imbalance [Unknown]
  - Dehydration [Unknown]
  - Treatment noncompliance [Unknown]
